FAERS Safety Report 22293024 (Version 1)
Quarter: 2023Q2

REPORT INFORMATION
  Report Type: Spontaneous
  Country: US (occurrence: US)
  Receive Date: 20230508
  Receipt Date: 20230508
  Transmission Date: 20230722
  Serious: Yes (Other)
  Sender: FDA-Public Use
  Company Number: US-drreddys-LIT/USA/23/0164552

PATIENT
  Age: 20 Year
  Sex: Female

DRUGS (2)
  1. CARVEDILOL [Suspect]
     Active Substance: CARVEDILOL
     Indication: Left ventricular dysfunction
  2. LISINOPRIL [Suspect]
     Active Substance: LISINOPRIL
     Indication: Left ventricular dysfunction

REACTIONS (1)
  - Drug ineffective [Unknown]
